FAERS Safety Report 20577357 (Version 1)
Quarter: 2022Q1

REPORT INFORMATION
  Report Type: Spontaneous
  Country: US (occurrence: None)
  Receive Date: 20220309
  Receipt Date: 20220309
  Transmission Date: 20220424
  Serious: Yes (Hospitalization)
  Sender: FDA-Public Use
  Company Number: None

PATIENT
  Age: 84 Year
  Sex: Male

DRUGS (12)
  1. ADEMPAS [Suspect]
     Active Substance: RIOCIGUAT
     Indication: Pulmonary hypertension
     Dosage: FREQUENCY : 3 TIMES A DAY;?
     Route: 048
     Dates: start: 20191001
  2. ASPIRIN [Concomitant]
     Active Substance: ASPIRIN
  3. ATROVENT [Concomitant]
     Active Substance: IPRATROPIUM BROMIDE
  4. FLOMAX [Concomitant]
     Active Substance: TAMSULOSIN HYDROCHLORIDE
  5. PEPCID [Concomitant]
     Active Substance: FAMOTIDINE
  6. GLIPIZIDE [Concomitant]
     Active Substance: GLIPIZIDE
  7. LEVOTHYROXINE [Concomitant]
     Active Substance: LEVOTHYROXINE
  8. WARFARIN [Concomitant]
     Active Substance: WARFARIN
  9. HYDROXYCHLOROQUINE [Concomitant]
     Active Substance: HYDROXYCHLOROQUINE
  10. BUMEX [Concomitant]
     Active Substance: BUMETANIDE
  11. METOPROLOL [Concomitant]
     Active Substance: METOPROLOL
  12. ALLOPURINOL [Concomitant]
     Active Substance: ALLOPURINOL

REACTIONS (4)
  - Rectal haemorrhage [None]
  - Hypotension [None]
  - Lower gastrointestinal haemorrhage [None]
  - Diverticulum intestinal haemorrhagic [None]

NARRATIVE: CASE EVENT DATE: 20220228
